FAERS Safety Report 14245715 (Version 1)
Quarter: 2017Q4

REPORT INFORMATION
  Report Type: Report from Study
  Country: US (occurrence: US)
  Receive Date: 20171204
  Receipt Date: 20171204
  Transmission Date: 20180321
  Serious: Yes (Other)
  Sender: FDA-Public Use
  Company Number: US-ROCHE-2031148

PATIENT

DRUGS (2)
  1. CUDC-907 [Suspect]
     Active Substance: FIMEPINOSTAT
     Indication: DIFFUSE LARGE B-CELL LYMPHOMA
     Route: 048
  2. RITUXIMAB. [Suspect]
     Active Substance: RITUXIMAB
     Indication: DIFFUSE LARGE B-CELL LYMPHOMA
     Route: 042

REACTIONS (15)
  - Haematotoxicity [None]
  - Fatigue [Unknown]
  - Diarrhoea [None]
  - Hyperglycaemia [None]
  - Thrombocytopenia [Unknown]
  - Neutropenia [Unknown]
  - Vomiting [Unknown]
  - Cough [None]
  - Hypokalaemia [None]
  - Pyrexia [Unknown]
  - Constipation [None]
  - Oedema [None]
  - Abdominal pain [Unknown]
  - Hypomagnesaemia [None]
  - Anaemia [Unknown]
